FAERS Safety Report 26174107 (Version 1)
Quarter: 2025Q4

REPORT INFORMATION
  Report Type: Spontaneous
  Country: US (occurrence: US)
  Receive Date: 20251218
  Receipt Date: 20251218
  Transmission Date: 20260117
  Serious: Yes (Hospitalization)
  Sender: MYLAN
  Company Number: US-MYLANLABS-2025M1106947

PATIENT
  Age: 65 Year
  Sex: Female

DRUGS (8)
  1. PAROXETINE [Suspect]
     Active Substance: PAROXETINE
     Indication: Bipolar disorder
     Dosage: UNK
     Route: 065
  2. PAROXETINE [Suspect]
     Active Substance: PAROXETINE
     Indication: Schizoaffective disorder
     Dosage: UNK
  3. PAROXETINE [Suspect]
     Active Substance: PAROXETINE
     Dosage: UNK
  4. PAROXETINE [Suspect]
     Active Substance: PAROXETINE
     Dosage: UNK
     Route: 065
  5. PAROXETINE [Suspect]
     Active Substance: PAROXETINE
     Dosage: UNK, THERAPY REINITIATED
     Route: 065
  6. PAROXETINE [Suspect]
     Active Substance: PAROXETINE
     Dosage: UNK, THERAPY REINITIATED
  7. PAROXETINE [Suspect]
     Active Substance: PAROXETINE
     Dosage: UNK, THERAPY REINITIATED
  8. PAROXETINE [Suspect]
     Active Substance: PAROXETINE
     Dosage: UNK, THERAPY REINITIATED
     Route: 065

REACTIONS (3)
  - Antidepressant discontinuation syndrome [Recovered/Resolved]
  - Treatment noncompliance [Recovered/Resolved]
  - Intentional product misuse [Recovered/Resolved]
